FAERS Safety Report 16195222 (Version 4)
Quarter: 2021Q2

REPORT INFORMATION
  Report Type: Other
  Country: CA (occurrence: CA)
  Receive Date: 20190415
  Receipt Date: 20210525
  Transmission Date: 20210716
  Serious: Yes (Hospitalization)
  Sender: FDA-Public Use
  Company Number: CA-ROCHE-2302802

PATIENT
  Age: 48 Year
  Sex: Male

DRUGS (9)
  1. OCREVUS [Suspect]
     Active Substance: OCRELIZUMAB
     Indication: RELAPSING-REMITTING MULTIPLE SCLEROSIS
     Dosage: 300 MG AT DAY 0 AND 14, THEN 600 MG EVERY 6 MONTH ;ONGOING: YES
     Route: 042
     Dates: start: 20180919
  2. ASA [Concomitant]
     Active Substance: ASPIRIN
  3. ZOPICLON [Concomitant]
     Active Substance: ZOPICLONE
     Dosage: ONGOING?YES
  4. AVENTYL [Concomitant]
     Active Substance: NORTRIPTYLINE HYDROCHLORIDE
     Indication: DEPRESSION
     Dosage: ONGOING?YES
  5. VENLAFAXIN [Concomitant]
     Active Substance: VENLAFAXINE HYDROCHLORIDE
     Indication: DEPRESSION
     Dosage: ONGOING?YES
  6. ATORVASTATIN [Concomitant]
     Active Substance: ATORVASTATIN
  7. CLINDAMYCIN. [Concomitant]
     Active Substance: CLINDAMYCIN
  8. ASA [Concomitant]
     Active Substance: ASPIRIN
     Dosage: ONGOING?YES
  9. QUETIAPINE. [Concomitant]
     Active Substance: QUETIAPINE

REACTIONS (8)
  - Diarrhoea [Not Recovered/Not Resolved]
  - Fatigue [Not Recovered/Not Resolved]
  - Tooth infection [Recovered/Resolved]
  - Migraine [Not Recovered/Not Resolved]
  - Nervousness [Not Recovered/Not Resolved]
  - Stress [Not Recovered/Not Resolved]
  - Amnesia [Not Recovered/Not Resolved]
  - Gastroenteritis [Not Recovered/Not Resolved]

NARRATIVE: CASE EVENT DATE: 201904
